FAERS Safety Report 8612435-1 (Version None)
Quarter: 2012Q3

REPORT INFORMATION
  Report Type: 
  Country: None (occurrence: None)
  Receive Date: 20120822
  Receipt Date: 20120815
  Transmission Date: 20120928
  Serious: Yes (Hospitalization)
  Sender: FDA-Public Use
  Company Number: US-US-EMD SERONO, INC.-7053022

PATIENT
  Sex: Female

DRUGS (3)
  1. AMBIEN [Concomitant]
     Indication: PRODUCT USED FOR UNKNOWN INDICATION
  2. PROVIGIL [Concomitant]
     Indication: PRODUCT USED FOR UNKNOWN INDICATION
  3. REBIF [Suspect]
     Indication: MULTIPLE SCLEROSIS
     Route: 058
     Dates: start: 20070808

REACTIONS (5)
  - MULTIPLE SCLEROSIS RELAPSE [None]
  - APPENDICITIS [None]
  - INJECTION SITE PAIN [None]
  - DEPRESSION [None]
  - INJECTION SITE HAEMATOMA [None]
